FAERS Safety Report 7991681-4 (Version None)
Quarter: 2011Q4

REPORT INFORMATION
  Report Type: 
  Country: None (occurrence: None)
  Receive Date: 20111219
  Receipt Date: 20111205
  Transmission Date: 20120403
  Serious: Yes (Hospitalization)
  Sender: FDA-Public Use
  Company Number: PHHY2011IT106732

PATIENT
  Age: 59 Year
  Sex: Male

DRUGS (6)
  1. PREDNISONE TAB [Concomitant]
     Dosage: 1 MG/KG, PER DAY
  2. CYCLOPHOSPHAMIDE [Concomitant]
     Dosage: 2 MG/KG, DAY
  3. CORTICOSTEROIDS [Concomitant]
     Indication: CRYOGLOBULINAEMIA
  4. CYCLOSPORINE [Suspect]
     Indication: CRYOGLOBULINAEMIA
  5. METHYLPREDNISOLONE [Concomitant]
     Dosage: 1 G,DAY
  6. RITUXIMAB [Concomitant]
     Indication: CRYOGLOBULINAEMIA

REACTIONS (15)
  - BLOOD PRESSURE INCREASED [None]
  - ASTHENIA [None]
  - ASPARTATE AMINOTRANSFERASE INCREASED [None]
  - ALANINE AMINOTRANSFERASE INCREASED [None]
  - ARTHRALGIA [None]
  - THROMBOCYTOPENIA [None]
  - RENAL IMPAIRMENT [None]
  - HEPATITIS C [None]
  - GLOMERULONEPHRITIS MEMBRANOPROLIFERATIVE [None]
  - OEDEMA PERIPHERAL [None]
  - KIDNEY FIBROSIS [None]
  - BLOOD ALKALINE PHOSPHATASE INCREASED [None]
  - VOMITING [None]
  - DECREASED APPETITE [None]
  - NAUSEA [None]
